FAERS Safety Report 7823756-4 (Version None)
Quarter: 2011Q4

REPORT INFORMATION
  Report Type: 
  Country: None (occurrence: None)
  Receive Date: 20111019
  Receipt Date: 20111014
  Transmission Date: 20120403
  Serious: No
  Sender: FDA-Public Use
  Company Number: US-PFIZER INC-2011246529

PATIENT
  Sex: Female
  Weight: 77.098 kg

DRUGS (6)
  1. CALCIUM [Concomitant]
     Dosage: UNK
  2. CHANTIX [Suspect]
     Indication: SMOKING CESSATION THERAPY
     Dosage: UNK
     Route: 048
     Dates: start: 20111005
  3. MULTI-VITAMINS [Concomitant]
     Indication: OBESITY SURGERY
     Dosage: UNKNOWN DOSE DAILY
  4. GABAPENTIN [Concomitant]
     Indication: FOOT OPERATION
     Dosage: 300 MG, UNK
  5. VITAMIN B-12 [Concomitant]
     Dosage: UNK
     Route: 060
  6. NICORETTE [Suspect]
     Dosage: UNK

REACTIONS (3)
  - RASH PRURITIC [None]
  - WITHDRAWAL SYNDROME [None]
  - VOMITING [None]
